FAERS Safety Report 25750295 (Version 3)
Quarter: 2025Q4

REPORT INFORMATION
  Report Type: Spontaneous
  Country: JP (occurrence: JP)
  Receive Date: 20250902
  Receipt Date: 20251118
  Transmission Date: 20260117
  Serious: Yes (Death, Other)
  Sender: AMGEN
  Company Number: JP-AMGEN-JPNSP2024048930

PATIENT
  Age: 77 Year
  Sex: Female

DRUGS (14)
  1. BLINCYTO [Suspect]
     Active Substance: BLINATUMOMAB
     Indication: Acute lymphocytic leukaemia recurrent
     Dosage: 5.95 MICROGRAM, QD, DRIP INFUSION
     Route: 042
     Dates: start: 20240304, end: 20240310
  2. BLINCYTO [Suspect]
     Active Substance: BLINATUMOMAB
     Dosage: 18.9 MICROGRAM, QD, DRIP INFUSION
     Route: 042
     Dates: start: 20240311, end: 20240331
  3. BLINCYTO [Suspect]
     Active Substance: BLINATUMOMAB
     Dosage: 18.9 MICROGRAM, QD, DRIP INFUSION
     Route: 042
     Dates: start: 20240415, end: 20240512
  4. BLINCYTO [Suspect]
     Active Substance: BLINATUMOMAB
     Dosage: 18.9 MICROGRAM, QD, DRIP INFUSION
     Route: 042
     Dates: start: 20240527, end: 20240623
  5. ICLUSIG [Concomitant]
     Active Substance: PONATINIB HYDROCHLORIDE
     Indication: Acute lymphocytic leukaemia recurrent
     Dosage: 15 MILLIGRAM, QD
     Route: 065
     Dates: start: 20240301
  6. OLMESARTAN MEDOXOMIL [Concomitant]
     Active Substance: OLMESARTAN MEDOXOMIL
     Indication: Cerebral haemorrhage
     Dosage: 10 MILLIGRAM, QD
     Route: 065
     Dates: start: 20240126
  7. AMLODIPINE BESYLATE [Concomitant]
     Active Substance: AMLODIPINE BESYLATE
     Indication: Cerebral haemorrhage
     Dosage: 2.5 MILLIGRAM, QD
     Route: 065
     Dates: start: 20240126
  8. AMIKACIN SULFATE [Concomitant]
     Active Substance: AMIKACIN SULFATE
     Indication: Catheter site infection
     Dosage: 500 MILLIGRAM, QD
     Route: 040
     Dates: start: 20240226, end: 20240324
  9. CILASTATIN SODIUM\IMIPENEM [Concomitant]
     Active Substance: CILASTATIN SODIUM\IMIPENEM
     Indication: Catheter site infection
     Dosage: 1 GRAM, TID
     Route: 040
     Dates: start: 20240226, end: 20240324
  10. ACYCLOVIR [Concomitant]
     Active Substance: ACYCLOVIR
     Indication: Prophylaxis
     Dosage: 200 MILLIGRAM, QD
  11. SULFAMETHOXAZOLE\TRIMETHOPRIM [Concomitant]
     Active Substance: SULFAMETHOXAZOLE\TRIMETHOPRIM
     Indication: Prophylaxis
     Dosage: 1 DOSAGE FORM, QD
  12. FEBUXOSTAT [Concomitant]
     Active Substance: FEBUXOSTAT
     Indication: Prophylaxis
     Dosage: 20 MILLIGRAM, QD
  13. MIYA-BM [Concomitant]
     Active Substance: CLOSTRIDIUM BUTYRICUM SPORES STRAIN M-55
     Indication: Constipation
     Dosage: 3 DOSAGE FORM, QD
  14. FLUCONAZOLE [Concomitant]
     Active Substance: FLUCONAZOLE
     Indication: Prophylaxis
     Dosage: 100 MILLIGRAM, QD

REACTIONS (2)
  - Acute lymphocytic leukaemia recurrent [Fatal]
  - Cytokine release syndrome [Recovered/Resolved]

NARRATIVE: CASE EVENT DATE: 20240305
